FAERS Safety Report 16357535 (Version 1)
Quarter: 2019Q2

REPORT INFORMATION
  Report Type: Spontaneous
  Country: FR (occurrence: FR)
  Receive Date: 20190527
  Receipt Date: 20190527
  Transmission Date: 20190711
  Serious: Yes (Life-Threatening)
  Sender: FDA-Public Use
  Company Number: FR-TEVA-2019-FR-1054332

PATIENT
  Age: 20 Year
  Sex: Female
  Weight: 71 kg

DRUGS (9)
  1. PROPOFOL LIPURO [Suspect]
     Active Substance: PROPOFOL
     Indication: INDUCTION OF ANAESTHESIA
     Route: 041
     Dates: start: 20190417, end: 20190417
  2. ALLERGODIL [Concomitant]
     Active Substance: AZELASTINE
  3. ANTADYS [Concomitant]
     Active Substance: FLURBIPROFEN
  4. KETAMINE RENAUDIN [Suspect]
     Active Substance: KETAMINE
     Indication: INDUCTION OF ANAESTHESIA
     Route: 041
     Dates: start: 20190417, end: 20190417
  5. ATRACURIUM HOSPIRA [Suspect]
     Active Substance: ATRACURIUM BESYLATE
     Indication: INDUCTION OF ANAESTHESIA
     Route: 041
     Dates: start: 20190417, end: 20190417
  6. PRAZEPAM BIOGARAN [Concomitant]
     Active Substance: PRAZEPAM
  7. CHLORHEXIDINE (GLUCONATE DE) [Suspect]
     Active Substance: CHLORHEXIDINE GLUCONATE
     Indication: INFECTION PROPHYLAXIS
     Route: 003
     Dates: start: 20190417, end: 20190417
  8. DEXAMETHASONE MYLAN 4 MG/1 ML, SOLUTION INJECTABLE EN AMPOULE [Suspect]
     Active Substance: DEXAMETHASONE
     Indication: PRODUCT USED FOR UNKNOWN INDICATION
     Route: 041
     Dates: start: 20190417, end: 20190417
  9. SUFENTANIL MYLAN [Suspect]
     Active Substance: SUFENTANIL
     Indication: INDUCTION OF ANAESTHESIA
     Route: 041
     Dates: start: 20190417, end: 20190417

REACTIONS (1)
  - Anaphylactic shock [Recovered/Resolved]

NARRATIVE: CASE EVENT DATE: 20190417
